FAERS Safety Report 6151895-5 (Version None)
Quarter: 2009Q2

REPORT INFORMATION
  Report Type: 
  Country: None (occurrence: None)
  Receive Date: 20090410
  Receipt Date: 20090330
  Transmission Date: 20091009
  Serious: Yes (Other)
  Sender: FDA-Public Use
  Company Number: US-JNJFOC-20090400285

PATIENT
  Age: 7 Year
  Sex: Female

DRUGS (4)
  1. REMICADE [Suspect]
     Dosage: 2ND INFUSION
     Route: 042
  2. REMICADE [Suspect]
     Indication: DRUG USE FOR UNKNOWN INDICATION
     Dosage: 1ST INFUSION
     Route: 042
  3. TYLENOL [Concomitant]
     Indication: PREMEDICATION
  4. CLARITIN [Concomitant]
     Indication: PREMEDICATION

REACTIONS (2)
  - INFUSION RELATED REACTION [None]
  - RED MAN SYNDROME [None]
